FAERS Safety Report 6268826-X (Version None)
Quarter: 2009Q3

REPORT INFORMATION
  Report Type: 
  Country: None (occurrence: None)
  Receive Date: 20090715
  Receipt Date: 20090714
  Transmission Date: 20100115
  Serious: Yes (Death)
  Sender: FDA-Public Use
  Company Number: DE-WYE-H09649909

PATIENT
  Sex: Male
  Weight: 88 kg

DRUGS (8)
  1. TYGACIL [Suspect]
     Indication: PNEUMONIA
     Dosage: 100MG DAILY
     Route: 042
     Dates: start: 20060303, end: 20060306
  2. TYGACIL [Suspect]
     Indication: PYREXIA
  3. MERONEM [Concomitant]
     Indication: PNEUMONIA
     Dosage: 3G DAILY
     Route: 042
     Dates: start: 20060217, end: 20060306
  4. MERONEM [Concomitant]
     Indication: PYREXIA
  5. ACYCLOVIR [Concomitant]
     Indication: PNEUMONIA
     Dosage: 500MG DAILY
     Route: 042
     Dates: start: 20060217, end: 20060306
  6. ACYCLOVIR [Concomitant]
     Indication: PYREXIA
  7. CASPOFUNGIN ACETATE [Concomitant]
     Indication: PNEUMONIA
     Dosage: 50MG DAILY
     Route: 042
     Dates: start: 20060217, end: 20060306
  8. CASPOFUNGIN ACETATE [Concomitant]
     Indication: PYREXIA

REACTIONS (2)
  - MULTI-ORGAN FAILURE [None]
  - SEPSIS [None]
